FAERS Safety Report 4335099-4 (Version None)
Quarter: 2004Q2

REPORT INFORMATION
  Report Type: 
  Country: None (occurrence: None)
  Receive Date: 20040408
  Receipt Date: 20031219
  Transmission Date: 20050107
  Serious: Yes (Other)
  Sender: FDA-Public Use
  Company Number: PHBS2003JP14411

PATIENT
  Age: 56 Year
  Sex: Male
  Weight: 55 kg

DRUGS (5)
  1. NEORAL [Suspect]
     Indication: RENAL TRANSPLANT
     Dosage: 450 MG/D
     Route: 048
     Dates: start: 20030906
  2. SIMULECT [Suspect]
     Indication: RENAL TRANSPLANT
     Dosage: 20 MG/D
     Route: 042
     Dates: start: 20030909, end: 20030909
  3. SIMULECT [Suspect]
     Dosage: 20 MG/D
     Route: 042
     Dates: start: 20030913, end: 20030913
  4. CELLCEPT [Suspect]
     Indication: RENAL TRANSPLANT
     Dosage: 2 G/D
     Route: 048
     Dates: start: 20030906, end: 20030906
  5. SANDIMMUNE [Suspect]
     Indication: RENAL TRANSPLANT
     Dosage: 150 MG/D
     Route: 042
     Dates: start: 20030909, end: 20030910

REACTIONS (1)
  - BLOOD AMYLASE INCREASED [None]
